FAERS Safety Report 13276554 (Version 1)
Quarter: 2017Q1

REPORT INFORMATION
  Report Type: Spontaneous
  Country: US (occurrence: US)
  Receive Date: 20170227
  Receipt Date: 20170227
  Transmission Date: 20170428
  Serious: No
  Sender: FDA-Public Use
  Company Number: None

PATIENT
  Sex: Female

DRUGS (1)
  1. IBRANCE [Suspect]
     Active Substance: PALBOCICLIB
     Indication: PRODUCT USED FOR UNKNOWN INDICATION
     Dosage: 125MG DAILY FOR 21 DAYS ON AND 7 DAYS OFF PO
     Route: 048
     Dates: start: 20160831, end: 20170224

REACTIONS (2)
  - Osteogenesis imperfecta [None]
  - Unevaluable event [None]
